FAERS Safety Report 9217914 (Version 4)
Quarter: 2013Q2

REPORT INFORMATION
  Report Type: Spontaneous
  Country: US (occurrence: US)
  Receive Date: 20130408
  Receipt Date: 20130530
  Transmission Date: 20140414
  Serious: Yes (Death, Hospitalization)
  Sender: FDA-Public Use
  Company Number: US-BAXTER-2013BAX010647

PATIENT
  Sex: Male

DRUGS (1)
  1. DIANEAL LOW CALCIUM [Suspect]
     Indication: PERITONEAL DIALYSIS
     Route: 033
     Dates: start: 2007, end: 20130423

REACTIONS (5)
  - Multimorbidity [Fatal]
  - Gangrene [Fatal]
  - Sepsis [Fatal]
  - Hypophagia [Recovering/Resolving]
  - Dehydration [Recovering/Resolving]
